FAERS Safety Report 5831894-0 (Version None)
Quarter: 2008Q3

REPORT INFORMATION
  Report Type: 
  Country: None (occurrence: None)
  Receive Date: 20080804
  Receipt Date: 20080724
  Transmission Date: 20090109
  Serious: Yes (Other)
  Sender: FDA-Public Use
  Company Number: US-JNJFOC-20080706100

PATIENT
  Sex: Female
  Weight: 86.18 kg

DRUGS (7)
  1. REMICADE [Suspect]
     Indication: RHEUMATOID ARTHRITIS
     Route: 042
  2. ARAVA [Concomitant]
     Indication: RHEUMATOID ARTHRITIS
     Route: 048
  3. NEURONTIN [Concomitant]
  4. VICODIN ES [Concomitant]
  5. EVISTA [Concomitant]
  6. HYDROCHLOROTHIAZIDE [Concomitant]
  7. ACCUPRIL [Concomitant]

REACTIONS (1)
  - HEPATIC NEOPLASM MALIGNANT [None]
